FAERS Safety Report 17685075 (Version 4)
Quarter: 2023Q1

REPORT INFORMATION
  Report Type: Spontaneous
  Country: CA (occurrence: CA)
  Receive Date: 20200420
  Receipt Date: 20230331
  Transmission Date: 20230417
  Serious: Yes (Life-Threatening, Hospitalization, Other)
  Sender: FDA-Public Use
  Company Number: CA-009507513-2004CAN004403

PATIENT
  Age: 77 Year
  Sex: Male
  Weight: 66 kg

DRUGS (16)
  1. KEYTRUDA [Suspect]
     Active Substance: PEMBROLIZUMAB
     Indication: Lung carcinoma cell type unspecified stage III
     Dosage: 132 MILLIGRAM 1 EVERY 3 WEEKS||Q3W
     Route: 042
     Dates: start: 20190705, end: 20190705
  2. ASPIRIN [Concomitant]
     Active Substance: ASPIRIN
  3. CALCIUM [Concomitant]
     Active Substance: CALCIUM
  4. CRESTOR [Concomitant]
     Active Substance: ROSUVASTATIN CALCIUM
  5. DILTIAZEM [Concomitant]
     Active Substance: DILTIAZEM
  6. MOMETASONE FUROATE [Concomitant]
     Active Substance: MOMETASONE FUROATE
  7. EZETIMIBE [Concomitant]
     Active Substance: EZETIMIBE
  8. IRON [Concomitant]
     Active Substance: IRON
  9. POLYETHYLENE GLYCOL 3350 [Concomitant]
     Active Substance: POLYETHYLENE GLYCOL 3350
  10. METFORMIN [Concomitant]
     Active Substance: METFORMIN HYDROCHLORIDE
  11. NITROGLYCERIN [Concomitant]
     Active Substance: NITROGLYCERIN
  12. RAMIPRIL [Concomitant]
     Active Substance: RAMIPRIL
  13. VENTOLIN [Concomitant]
     Active Substance: ALBUTEROL SULFATE
  14. CYANOCOBALAMIN [Concomitant]
     Active Substance: CYANOCOBALAMIN
  15. VITAMIN D NOS [Concomitant]
     Active Substance: VITAMIN D NOS
  16. ZOPICLONE [Concomitant]
     Active Substance: ZOPICLONE

REACTIONS (6)
  - Acute myocardial infarction [Recovering/Resolving]
  - Anti factor VIII antibody positive [Recovering/Resolving]
  - Atrial flutter [Recovering/Resolving]
  - Acquired factor VIII deficiency [Recovering/Resolving]
  - Gastritis [Recovering/Resolving]
  - Haemoglobin decreased [Recovering/Resolving]
